FAERS Safety Report 9312037 (Version 2)
Quarter: 2013Q2

REPORT INFORMATION
  Report Type: Report from Study
  Country: IN (occurrence: IN)
  Receive Date: 20130528
  Receipt Date: 20130610
  Transmission Date: 20140414
  Serious: Yes (Death, Hospitalization)
  Sender: FDA-Public Use
  Company Number: PHHY2013IN039939

PATIENT
  Age: 82 Year
  Sex: Female

DRUGS (21)
  1. ACLASTA/ZOLEDRONATE [Suspect]
     Indication: OSTEOPOROSIS
     Dosage: 5 MG, UNK
     Route: 042
     Dates: start: 20121208
  2. FOLITRAX//METHOTREXATE [Concomitant]
     Indication: RHEUMATOID ARTHRITIS
     Dosage: 15 MG ONCE WEEKLY ON MONDAY
     Dates: start: 201112
  3. FOLVITE [Concomitant]
     Indication: RHEUMATOID ARTHRITIS
     Dosage: `5 MG, QD EXCEPT MONDAY
     Dates: start: 201112
  4. LEFNO [Concomitant]
     Indication: RHEUMATOID ARTHRITIS
     Dosage: 20 MG, QD (AT 10 AM)
     Dates: start: 201112
  5. SHELCAL [Concomitant]
     Indication: BLOOD CALCIUM ABNORMAL
     Dosage: 500 MG, QD
     Dates: start: 201112
  6. NEBICARD [Concomitant]
     Indication: HYPERTENSION
     Dosage: 5 MG, BID (10 AM - 10 PM)
     Dates: start: 201112
  7. SORTEL [Concomitant]
     Indication: URINARY INCONTINENCE
     Dosage: 80 MG, BID (10 AM - 10 PM)
     Dates: start: 201112
  8. CHROMIUM PICOLINATE [Concomitant]
     Indication: VITAMIN D ABNORMAL
     Dosage: 1 DF, QD
     Dates: start: 201112
  9. VORTH [Concomitant]
     Indication: PAIN
     Dosage: 1 DF, QD AFTER BREAKFAST
     Dates: start: 201112
  10. DUOLIN [Concomitant]
     Indication: ASTHMA
     Dosage: 1 RESP. 6 HOURLY
     Dates: start: 201303
  11. BUDECORT [Concomitant]
     Indication: ASTHMA
     Dosage: 1 RESP. 12 HOURLY
     Dates: start: 201303
  12. WYSOLONE [Concomitant]
     Indication: HYPERSENSITIVITY
     Dosage: 70 MG, QD AFTER MEALS
     Dates: start: 20130421
  13. WYSOLONE [Concomitant]
     Dosage: 30 UNK, UNK
     Dates: start: 20130513, end: 20130517
  14. WYSOLONE [Concomitant]
     Dosage: 20 MG, QD
     Dates: start: 20130518, end: 20130522
  15. WYSOLONE [Concomitant]
     Dosage: 10 MG, QD
     Dates: start: 20130523, end: 20130527
  16. PAN [Concomitant]
     Indication: ULCER
     Dosage: 40 MG, QD HALF AN HOUR BEFORE BREAKFAST
     Dates: start: 20130421
  17. MOXICIP [Concomitant]
     Indication: EYE INFECTION
     Dosage: 1-2 DROPS 6 HOURLY
     Dates: start: 20130421
  18. SYSTANE [Concomitant]
     Indication: EYE INFECTION
     Dosage: 1-2 DROPS 6 HOURLY
  19. CALCIROL [Concomitant]
     Indication: HYPOVITAMINOSIS
     Dosage: 1 SACHET MONTHLY
     Dates: start: 201112
  20. DAFLON                             /01026201/ [Concomitant]
     Indication: SKIN ULCER
     Dosage: 500 MG, TID
     Dates: start: 20130513
  21. VITAMIN D3 [Concomitant]
     Indication: HYPOVITAMINOSIS
     Dosage: 1 DF, ONCE A MONTH
     Dates: start: 201112

REACTIONS (28)
  - Orbital pseudotumour [Fatal]
  - Cardio-respiratory arrest [Fatal]
  - Rheumatoid arthritis [Fatal]
  - Chronic obstructive pulmonary disease [Fatal]
  - Hypertension [Fatal]
  - Interstitial lung disease [Fatal]
  - Acute respiratory distress syndrome [Fatal]
  - Sepsis [Fatal]
  - Septic shock [Fatal]
  - Back pain [Recovered/Resolved]
  - Tenderness [Recovered/Resolved]
  - Eye swelling [Recovered/Resolved]
  - Lacrimation increased [Recovered/Resolved]
  - Ocular hyperaemia [Recovered/Resolved]
  - Cerebral atrophy [Recovered/Resolved]
  - Local swelling [Not Recovered/Not Resolved]
  - Haemorrhoids [Not Recovered/Not Resolved]
  - Dyspnoea [Not Recovered/Not Resolved]
  - Lung disorder [Unknown]
  - Pleural effusion [Unknown]
  - Opportunistic infection [Unknown]
  - Inflammatory marker increased [Unknown]
  - Pulmonary fibrosis [Unknown]
  - Bacterial infection [Unknown]
  - Cardiac arrest [Unknown]
  - Hypotension [Unknown]
  - Pyrexia [Unknown]
  - Cough [Unknown]
